FAERS Safety Report 5615839-4 (Version None)
Quarter: 2008Q1

REPORT INFORMATION
  Report Type: 
  Country: None (occurrence: None)
  Receive Date: 20080206
  Receipt Date: 20080124
  Transmission Date: 20080703
  Serious: No
  Sender: FDA-Public Use
  Company Number: US-ELI_LILLY_AND_COMPANY-US200712002962

PATIENT
  Age: 68 Year
  Sex: Male

DRUGS (3)
  1. CYMBALTA [Suspect]
     Indication: NEURALGIA
     Dosage: 60 MG, UNK
     Dates: start: 20071101, end: 20070101
  2. METOPROLOL TARTRATE [Concomitant]
  3. AGGRENOX [Concomitant]
     Dosage: 225 MG, UNK

REACTIONS (5)
  - CONTUSION [None]
  - DIZZINESS [None]
  - FALL [None]
  - NAUSEA [None]
  - SOMNOLENCE [None]
